FAERS Safety Report 24347864 (Version 1)
Quarter: 2024Q3

REPORT INFORMATION
  Report Type: Spontaneous
  Country: US (occurrence: US)
  Receive Date: 20240922
  Receipt Date: 20240922
  Transmission Date: 20241017
  Serious: No
  Sender: ABBVIE
  Company Number: US-ABBVIE-5925442

PATIENT

DRUGS (2)
  1. KALETRA [Suspect]
     Active Substance: LOPINAVIR\RITONAVIR
     Indication: HIV infection
     Route: 048
  2. VERAPAMIL HYDROCHLORIDE [Suspect]
     Active Substance: VERAPAMIL HYDROCHLORIDE
     Indication: Product used for unknown indication
     Route: 065

REACTIONS (8)
  - Stress [Unknown]
  - Nasal congestion [Unknown]
  - Productive cough [Unknown]
  - Hypersensitivity [Unknown]
  - Insomnia [Unknown]
  - Head discomfort [Unknown]
  - Feeling abnormal [Unknown]
  - Pain [Unknown]
